FAERS Safety Report 10076666 (Version 1)
Quarter: 2014Q2

REPORT INFORMATION
  Report Type: Spontaneous
  Country: US (occurrence: US)
  Receive Date: 20140414
  Receipt Date: 20140414
  Transmission Date: 20141212
  Serious: No
  Sender: FDA-Public Use
  Company Number: US-TEVA-474791USA

PATIENT
  Sex: Male
  Weight: 88.08 kg

DRUGS (7)
  1. AZILECT [Suspect]
     Indication: PARKINSON^S DISEASE
     Route: 048
     Dates: start: 2011
  2. REQUIP [Concomitant]
     Indication: PARKINSON^S DISEASE
     Dosage: 18 MILLIGRAM DAILY;
  3. CARBIDOPA W/ENTACAPONE W/LEVODOPA [Concomitant]
     Indication: PARKINSON^S DISEASE
     Dosage: 300 MILLIGRAM DAILY;
  4. GABAPENTIN [Concomitant]
     Indication: PARKINSON^S DISEASE
  5. LISINOPRIL [Concomitant]
     Indication: HYPERTENSION
     Dosage: 40 MILLIGRAM DAILY;
  6. FOLIC ACID [Concomitant]
     Indication: VITAMIN B COMPLEX DEFICIENCY
     Dosage: 1 MILLIGRAM DAILY;
  7. ACETAMINOPHEN PM [Concomitant]
     Indication: SLEEP DISORDER

REACTIONS (3)
  - Hyperhidrosis [Not Recovered/Not Resolved]
  - Hiccups [Not Recovered/Not Resolved]
  - Off label use [Not Recovered/Not Resolved]
